FAERS Safety Report 7066910-4 (Version None)
Quarter: 2010Q4

REPORT INFORMATION
  Report Type: 
  Country: None (occurrence: None)
  Receive Date: 20101028
  Receipt Date: 20101005
  Transmission Date: 20110411
  Serious: Yes (Hospitalization, Other)
  Sender: FDA-Public Use
  Company Number: US-BIOGENIDEC-2008BI022561

PATIENT
  Sex: Female
  Weight: 65 kg

DRUGS (4)
  1. AVONEX [Suspect]
     Indication: MULTIPLE SCLEROSIS
     Route: 030
     Dates: start: 19990601, end: 20030101
  2. AVONEX [Suspect]
     Route: 030
     Dates: start: 20030101, end: 20080107
  3. AVONEX [Suspect]
     Route: 030
     Dates: start: 20080523
  4. PREDNISONE [Concomitant]

REACTIONS (17)
  - BLOOD PRESSURE INCREASED [None]
  - CHILLS [None]
  - CONVULSION [None]
  - GAIT DISTURBANCE [None]
  - MOBILITY DECREASED [None]
  - MULTIPLE SCLEROSIS [None]
  - MULTIPLE SCLEROSIS RELAPSE [None]
  - MUSCULOSKELETAL DISORDER [None]
  - MUSCULOSKELETAL PAIN [None]
  - OSTEONECROSIS [None]
  - PERONEAL NERVE PALSY [None]
  - POST PROCEDURAL INFECTION [None]
  - POSTICTAL STATE [None]
  - PROCEDURAL PAIN [None]
  - PYREXIA [None]
  - URINARY TRACT DISORDER [None]
  - URINARY TRACT INFECTION [None]
